FAERS Safety Report 8621943-9 (Version None)
Quarter: 2012Q3

REPORT INFORMATION
  Report Type: 
  Country: None (occurrence: None)
  Receive Date: 20120822
  Receipt Date: 20120822
  Transmission Date: 20120928
  Serious: Yes (Hospitalization)
  Sender: FDA-Public Use
  Company Number: None

PATIENT
  Age: 11 Year
  Sex: Male
  Weight: 35.2 kg

DRUGS (8)
  1. ONDANSETRON [Concomitant]
  2. DOXORUBICIN HYDROCHLORIDE [Concomitant]
  3. METFORMIN HCL [Suspect]
     Indication: B-CELL TYPE ACUTE LEUKAEMIA
     Dosage: 550MG
     Dates: start: 20120731
  4. CYTARABINE [Concomitant]
  5. PEG ASPARAGINASE [Concomitant]
  6. DEXAMETHASONE [Concomitant]
  7. ZANTAC [Concomitant]
  8. VINCRISTINE [Concomitant]

REACTIONS (6)
  - GAIT DISTURBANCE [None]
  - PLATELET COUNT DECREASED [None]
  - BACTERIAL TEST POSITIVE [None]
  - ANAL ABSCESS [None]
  - NEUTROPENIA [None]
  - THROMBOCYTOPENIA [None]
